FAERS Safety Report 9236002 (Version 1)
Quarter: 2013Q2

REPORT INFORMATION
  Report Type: Spontaneous
  Country: DE (occurrence: DE)
  Receive Date: 20130417
  Receipt Date: 20130417
  Transmission Date: 20140414
  Serious: Yes (Hospitalization, Disabling)
  Sender: FDA-Public Use
  Company Number: DE-JNJFOC-20130407674

PATIENT
  Age: 61 Year
  Sex: Female
  Weight: 73 kg

DRUGS (7)
  1. XARELTO [Suspect]
     Indication: EMBOLISM VENOUS
     Route: 048
  2. XARELTO [Suspect]
     Indication: EMBOLISM VENOUS
     Route: 048
     Dates: start: 201210
  3. XARELTO [Suspect]
     Indication: DEEP VEIN THROMBOSIS
     Route: 048
     Dates: start: 201210
  4. XARELTO [Suspect]
     Indication: DEEP VEIN THROMBOSIS
     Route: 048
  5. RISPERIDONE [Concomitant]
     Route: 065
  6. AMITRIPTYLIN [Concomitant]
     Route: 065
  7. CHLORPROTHIXEN [Concomitant]
     Route: 065

REACTIONS (2)
  - Hemiparesis [Recovering/Resolving]
  - Ischaemic stroke [Not Recovered/Not Resolved]
